FAERS Safety Report 25400716 (Version 2)
Quarter: 2025Q2

REPORT INFORMATION
  Report Type: Spontaneous
  Country: DE (occurrence: DE)
  Receive Date: 20250605
  Receipt Date: 20250625
  Transmission Date: 20250717
  Serious: Yes (Other)
  Sender: AUROBINDO
  Company Number: DE-002147023-NVSC2025DE078634

PATIENT
  Age: 43 Year
  Sex: Female
  Weight: 67 kg

DRUGS (3)
  1. ANASTROZOLE [Suspect]
     Active Substance: ANASTROZOLE
     Indication: Hormone receptor positive HER2 negative breast cancer
     Dosage: 2.5 MILLIGRAM, ONCE A DAY (2.5 MG, QD)
     Route: 048
     Dates: start: 20250429
  2. KISQALI [Suspect]
     Active Substance: RIBOCICLIB SUCCINATE
     Indication: Hormone receptor positive HER2 negative breast cancer
     Dosage: 400 MILLIGRAM, ONCE A DAY (400 MG, QD (21 DAYS DAILY INTAKE, 7 DAYS PAUSE)
     Route: 048
     Dates: start: 20250429
  3. GONADORELIN DIACETATE TETRAHYDRATE [Concomitant]
     Active Substance: GONADORELIN DIACETATE TETRAHYDRATE
     Indication: Hormone receptor positive HER2 negative breast cancer
     Dosage: 3.5 MILLIGRAM, ONCE A DAY
     Route: 065
     Dates: start: 20250428

REACTIONS (3)
  - Electrocardiogram QT prolonged [Recovered/Resolved]
  - Electrocardiogram T wave abnormal [Unknown]
  - Bundle branch block right [Unknown]

NARRATIVE: CASE EVENT DATE: 20250512
